FAERS Safety Report 5263874-0 (Version None)
Quarter: 2007Q1

REPORT INFORMATION
  Report Type: 
  Country: None (occurrence: None)
  Receive Date: 20061213
  Receipt Date: 20050128
  Transmission Date: 20070707
  Serious: Yes (Other)
  Sender: FDA-Public Use
  Company Number: 2004UW20661

PATIENT
  Age: 22 Year
  Sex: Female
  Weight: 61.234 kg

DRUGS (5)
  1. IRESSA [Suspect]
     Indication: GLIOBLASTOMA
     Dosage: 500 MG PO
     Route: 048
     Dates: end: 20050110
  2. LAMICTAL [Concomitant]
  3. TEMODAR [Concomitant]
  4. TEGRETOL [Concomitant]
  5. TIMADUR [Concomitant]

REACTIONS (4)
  - CONVULSION [None]
  - DIARRHOEA [None]
  - RASH [None]
  - SKIN CHAPPED [None]
